FAERS Safety Report 9752312 (Version 1)
Quarter: 2013Q4

REPORT INFORMATION
  Report Type: Spontaneous
  Country: US (occurrence: None)
  Receive Date: 20131212
  Receipt Date: 20131212
  Transmission Date: 20140711
  Serious: Yes (Life-Threatening, Other)
  Sender: FDA-Public Use
  Company Number: None

PATIENT
  Age: 30 Year
  Sex: Female

DRUGS (1)
  1. SULFAMETHOXAZOLE-T MP [Suspect]
     Indication: URINARY TRACT INFECTION
     Dosage: TAKE 1 TABLET TWICE DAILY TAKEN BY MOUTH
     Route: 048
     Dates: start: 20131127, end: 20131207

REACTIONS (7)
  - Rash pruritic [None]
  - Rash generalised [None]
  - Dyspnoea [None]
  - Pain [None]
  - Wheezing [None]
  - Swollen tongue [None]
  - Hypersensitivity [None]
